FAERS Safety Report 8455310-8 (Version None)
Quarter: 2012Q2

REPORT INFORMATION
  Report Type: 
  Country: None (occurrence: None)
  Receive Date: 20120621
  Receipt Date: 20120612
  Transmission Date: 20120825
  Serious: Yes (Other)
  Sender: FDA-Public Use
  Company Number: JP-JNJFOC-20120405496

PATIENT
  Age: 7 Decade
  Sex: Male

DRUGS (6)
  1. TRAMADOL HCL [Suspect]
     Dosage: 3 DF PER DAY
     Route: 048
     Dates: end: 20120406
  2. TRAMADOL HCL [Suspect]
     Dosage: ONCE A DAY
     Route: 048
  3. FENTANYL-100 [Suspect]
     Indication: PAIN
     Dosage: ONCE EVERY 3 DAYS
     Route: 062
  4. CYMBALTA [Concomitant]
     Indication: DEPRESSION
     Route: 048
  5. TRAMADOL HCL [Suspect]
     Dosage: 6 DF PER DAY COMBINATION TABLETS
     Route: 048
     Dates: start: 20120407, end: 20120408
  6. TRAMADOL HCL [Suspect]
     Indication: PAIN
     Dosage: 3 TO 4 TABLETS (UP TO APPROXIMATELY 6 TABLETS PER DAY) WAS USED ON AN AS NEEDED BASIS.
     Route: 048

REACTIONS (3)
  - DEPRESSED LEVEL OF CONSCIOUSNESS [None]
  - PNEUMONIA ASPIRATION [None]
  - HAEMATURIA [None]
